FAERS Safety Report 7337236-6 (Version None)
Quarter: 2011Q1

REPORT INFORMATION
  Report Type: 
  Country: None (occurrence: None)
  Receive Date: 20110224
  Receipt Date: 20110209
  Transmission Date: 20110831
  Serious: No
  Sender: FDA-Public Use
  Company Number: SPI201100035

PATIENT

DRUGS (1)
  1. AMITIZA [Suspect]
     Indication: CONSTIPATION

REACTIONS (1)
  - DYSPNOEA [None]
